FAERS Safety Report 5541928-9 (Version None)
Quarter: 2007Q4

REPORT INFORMATION
  Report Type: 
  Country: None (occurrence: None)
  Receive Date: 20071210
  Receipt Date: 20071126
  Transmission Date: 20080405
  Serious: Yes (Hospitalization, Other)
  Sender: FDA-Public Use
  Company Number: NZ-ROCHE-529971

PATIENT
  Age: 59 Year
  Sex: Female
  Weight: 53 kg

DRUGS (1)
  1. XELODA [Suspect]
     Route: 065
     Dates: start: 20071012, end: 20071019

REACTIONS (6)
  - ATAXIA [None]
  - BALANCE DISORDER [None]
  - CRANIAL NERVE DISORDER [None]
  - DIZZINESS [None]
  - DYSARTHRIA [None]
  - NUCLEAR MAGNETIC RESONANCE IMAGING BRAIN ABNORMAL [None]
